FAERS Safety Report 6295719-4 (Version None)
Quarter: 2009Q3

REPORT INFORMATION
  Report Type: 
  Country: None (occurrence: None)
  Receive Date: 20090803
  Receipt Date: 20090803
  Transmission Date: 20100115
  Serious: Yes (Other)
  Sender: FDA-Public Use
  Company Number: None

PATIENT
  Age: 30 Year
  Sex: Male
  Weight: 61.2356 kg

DRUGS (1)
  1. TOPAMAX [Suspect]
     Dosage: 200MG BID ORAL
     Route: 048
     Dates: start: 20090501, end: 20090531

REACTIONS (2)
  - GRAND MAL CONVULSION [None]
  - PRODUCT SUBSTITUTION ISSUE [None]
